FAERS Safety Report 12632476 (Version 2)
Quarter: 2016Q3

REPORT INFORMATION
  Report Type: Spontaneous
  Country: US (occurrence: US)
  Receive Date: 20160808
  Receipt Date: 20160808
  Transmission Date: 20161109
  Serious: No
  Sender: FDA-Public Use
  Company Number: US-BEH-2016063010

PATIENT
  Sex: Female
  Weight: 49 kg

DRUGS (33)
  1. HIZENTRA [Suspect]
     Active Substance: HUMAN IMMUNOGLOBULIN G
     Indication: IMMUNODEFICIENCY COMMON VARIABLE
     Route: 058
  2. ZYRTEC [Concomitant]
     Active Substance: CETIRIZINE HYDROCHLORIDE
  3. DIPHENHYDRAMINE. [Concomitant]
     Active Substance: DIPHENHYDRAMINE
  4. LIDOCAINE/PRILOCAINE [Concomitant]
     Active Substance: LIDOCAINE\PRILOCAINE
  5. EPIPEN [Concomitant]
     Active Substance: EPINEPHRINE
  6. CALCIUM +D3 [Concomitant]
     Active Substance: CALCIUM\CHOLECALCIFEROL
  7. POTASSIUM [Concomitant]
     Active Substance: POTASSIUM
  8. DOXYCYCLINE-HYCLATE [Concomitant]
  9. MELATONIN [Concomitant]
     Active Substance: MELATONIN
  10. LEVOFLOXACIN. [Concomitant]
     Active Substance: LEVOFLOXACIN
  11. VERAMYST [Concomitant]
     Active Substance: FLUTICASONE FUROATE
  12. DAILY MULTIVITAMIN [Concomitant]
     Active Substance: VITAMINS
  13. LORAZEPAM. [Concomitant]
     Active Substance: LORAZEPAM
  14. GARLIC. [Concomitant]
     Active Substance: GARLIC
  15. LEVOTHYROXINE. [Concomitant]
     Active Substance: LEVOTHYROXINE
  16. WARFARIN [Concomitant]
     Active Substance: WARFARIN
  17. IMIPRAMINE [Concomitant]
     Active Substance: IMIPRAMINE
  18. FIBER-TABS [Concomitant]
  19. BL VITAMIN B12 [Concomitant]
  20. LOMOTIL [Concomitant]
     Active Substance: ATROPINE SULFATE\DIPHENOXYLATE HYDROCHLORIDE
  21. TYLENOL PM EX-STR [Concomitant]
  22. NEXIUM [Concomitant]
     Active Substance: ESOMEPRAZOLE MAGNESIUM
  23. TUMS 200 [Concomitant]
  24. DIGOXIN. [Concomitant]
     Active Substance: DIGOXIN
  25. HIZENTRA [Suspect]
     Active Substance: HUMAN IMMUNOGLOBULIN G
     Route: 058
  26. HIZENTRA [Suspect]
     Active Substance: HUMAN IMMUNOGLOBULIN G
     Route: 058
  27. LIDOCAINE. [Concomitant]
     Active Substance: LIDOCAINE
  28. DILTIAZEM. [Concomitant]
     Active Substance: DILTIAZEM
  29. BONE DENSITY CALCIUM+D [Concomitant]
  30. GLUCOSAMINE-CHONDROITIN [Concomitant]
     Active Substance: CHONDROITIN SULFATE (BOVINE)\GLUCOSAMINE SULFATE
  31. DONEPEZIL. [Concomitant]
     Active Substance: DONEPEZIL
  32. DICYCLOMINE [Concomitant]
     Active Substance: DICYCLOMINE HYDROCHLORIDE
  33. DONNATAL [Concomitant]
     Active Substance: ATROPINE SULFATE\HYOSCYAMINE SULFATE\PHENOBARBITAL\SCOPOLAMINE HYDROBROMIDE

REACTIONS (1)
  - Administration site oedema [Unknown]
